FAERS Safety Report 6762676-3 (Version None)
Quarter: 2010Q2

REPORT INFORMATION
  Report Type: 
  Country: None (occurrence: None)
  Receive Date: 20100609
  Receipt Date: 20100601
  Transmission Date: 20101027
  Serious: Yes (Other)
  Sender: FDA-Public Use
  Company Number: A0859670A

PATIENT
  Age: 42 Year
  Sex: Male
  Weight: 103.2 kg

DRUGS (4)
  1. COREG [Suspect]
     Indication: LEFT VENTRICULAR HYPERTROPHY
     Dosage: 25MG TWICE PER DAY
     Route: 048
  2. AMLODIPINE [Concomitant]
     Dosage: 5MG PER DAY
     Route: 048
  3. ZOLPIDEM [Concomitant]
     Indication: SLEEP DISORDER
     Dosage: 5MG AS REQUIRED
     Route: 048
  4. ASPIRIN [Concomitant]

REACTIONS (9)
  - ABDOMINAL DISTENSION [None]
  - CARDIAC FAILURE CONGESTIVE [None]
  - DRUG ADMINISTRATION ERROR [None]
  - DYSPNOEA [None]
  - MALAISE [None]
  - OVERDOSE [None]
  - RALES [None]
  - WAIST CIRCUMFERENCE INCREASED [None]
  - WEIGHT INCREASED [None]
